FAERS Safety Report 6492689-0 (Version None)
Quarter: 2009Q4

REPORT INFORMATION
  Report Type: 
  Country: None (occurrence: None)
  Receive Date: 20091211
  Receipt Date: 20091211
  Transmission Date: 20100525
  Serious: Yes (Other)
  Sender: FDA-Public Use
  Company Number: None

PATIENT
  Age: 17 Year
  Sex: Female
  Weight: 63.9572 kg

DRUGS (5)
  1. ABILIFY [Suspect]
     Indication: MOOD ALTERED
     Dosage: 1MG PO HS; 2 MG PO HS
     Route: 048
     Dates: start: 20090901, end: 20090921
  2. ABILIFY [Suspect]
     Indication: MOOD ALTERED
     Dosage: 1MG PO HS; 2 MG PO HS
     Route: 048
     Dates: start: 20090921, end: 20090924
  3. VISTARIL [Concomitant]
  4. COGENTIN [Concomitant]
  5. CLONIDINE [Concomitant]

REACTIONS (2)
  - INSOMNIA [None]
  - MUSCLE TWITCHING [None]
